FAERS Safety Report 14846033 (Version 1)
Quarter: 2018Q2

REPORT INFORMATION
  Report Type: Spontaneous
  Country: FR (occurrence: FR)
  Receive Date: 20180504
  Receipt Date: 20180504
  Transmission Date: 20180711
  Serious: Yes (Hospitalization)
  Sender: FDA-Public Use
  Company Number: FR-MERCK KGAA-2047183

PATIENT
  Age: 51 Year
  Sex: Female

DRUGS (1)
  1. NOVOTHYROX [Suspect]
     Active Substance: LEVOTHYROXINE SODIUM
     Indication: HYPERTHYROIDISM

REACTIONS (23)
  - Anxiety [None]
  - Cytomegalovirus test positive [None]
  - Hypokinesia [None]
  - Mood swings [None]
  - Stress [None]
  - Mobility decreased [None]
  - Pain [None]
  - Weight fluctuation [None]
  - Arthralgia [None]
  - Eyelid thickening [None]
  - Monocyte count increased [None]
  - Inflammation [None]
  - Fatigue [None]
  - Depression [None]
  - Insomnia [None]
  - Decreased appetite [None]
  - Loss of personal independence in daily activities [None]
  - Visual impairment [None]
  - Vertigo [None]
  - Epstein-Barr virus infection [None]
  - Headache [None]
  - Myalgia [None]
  - Eosinophil count decreased [None]

NARRATIVE: CASE EVENT DATE: 20170512
